FAERS Safety Report 4289644-8 (Version None)
Quarter: 2004Q1

REPORT INFORMATION
  Report Type: 
  Country: None (occurrence: None)
  Receive Date: 20040203
  Receipt Date: 20030204
  Transmission Date: 20041129
  Serious: Yes (Hospitalization)
  Sender: FDA-Public Use
  Company Number: 200311879BWH

PATIENT
  Age: 63 Year
  Sex: Female
  Weight: 140.6151 kg

DRUGS (3)
  1. AVELOX [Suspect]
     Indication: TOOTH INFECTION
     Dosage: 400 MG, QD, ORAL
     Route: 048
     Dates: start: 20030201
  2. DARVOCET-N 100 [Suspect]
     Indication: TOOTHACHE
     Dates: start: 20030201
  3. COMPAZINE [Suspect]
     Indication: NAUSEA
     Dosage: ORAL
     Route: 048
     Dates: start: 20020201

REACTIONS (6)
  - ERYTHEMA [None]
  - FLUSHING [None]
  - HYPERSENSITIVITY [None]
  - THROAT TIGHTNESS [None]
  - TREMOR [None]
  - URTICARIA [None]
